FAERS Safety Report 11558302 (Version 2)
Quarter: 2015Q4

REPORT INFORMATION
  Report Type: Spontaneous
  Country: US (occurrence: US)
  Receive Date: 20150928
  Receipt Date: 20151105
  Transmission Date: 20160304
  Serious: Yes (Death, Hospitalization)
  Sender: FDA-Public Use
  Company Number: US-AUROBINDO-AUR-APL-2015-08591

PATIENT
  Age: 58 Year
  Sex: Female

DRUGS (2)
  1. SERTRALINE [Suspect]
     Active Substance: SERTRALINE HYDROCHLORIDE
     Indication: PRODUCT USED FOR UNKNOWN INDICATION
     Dosage: UNK
     Route: 065
  2. GRANISETRON [Suspect]
     Active Substance: GRANISETRON
     Indication: PROPHYLAXIS OF NAUSEA AND VOMITING
     Dosage: UNK
     Route: 065

REACTIONS (11)
  - Mental status changes [Unknown]
  - Dyskinesia [Unknown]
  - Blood pressure abnormal [Unknown]
  - Eye movement disorder [Unknown]
  - Hyperreflexia [Unknown]
  - Vasogenic cerebral oedema [Unknown]
  - Death [Fatal]
  - Delirium [Unknown]
  - Tremor [Unknown]
  - Posterior reversible encephalopathy syndrome [Unknown]
  - Muscle rigidity [Unknown]
